FAERS Safety Report 4664955-2 (Version None)
Quarter: 2005Q2

REPORT INFORMATION
  Report Type: 
  Country: None (occurrence: None)
  Receive Date: 20050517
  Receipt Date: 20050428
  Transmission Date: 20051028
  Serious: Yes (Other)
  Sender: FDA-Public Use
  Company Number: JP_050506467

PATIENT
  Age: 81 Year
  Sex: Male

DRUGS (6)
  1. PERMAX [Suspect]
     Indication: PARKINSON'S DISEASE
     Dosage: 500 UG DAY
     Dates: start: 20040609, end: 20050420
  2. MADOPAR [Concomitant]
  3. DOPS (DROXIDOPA) [Concomitant]
  4. ARICEPT [Concomitant]
  5. SEROQUEL [Concomitant]
  6. PRAVASTATIN [Concomitant]

REACTIONS (1)
  - ACRODYNIA [None]
